FAERS Safety Report 4786787-7 (Version None)
Quarter: 2005Q4

REPORT INFORMATION
  Report Type: 
  Country: None (occurrence: None)
  Receive Date: 20051004
  Receipt Date: 20050830
  Transmission Date: 20060501
  Serious: Yes (Hospitalization)
  Sender: FDA-Public Use
  Company Number: JP-SP-2005-01712

PATIENT
  Age: 56 Year
  Sex: Male

DRUGS (1)
  1. IMMUCYST [Suspect]
     Indication: BLADDER CANCER
     Dosage: TOTAL DOSE 567 MG
     Route: 043
     Dates: start: 20050709, end: 20050820

REACTIONS (2)
  - PYELONEPHRITIS [None]
  - URINARY TRACT INFECTION [None]
